FAERS Safety Report 5372693-6 (Version None)
Quarter: 2007Q2

REPORT INFORMATION
  Report Type: 
  Country: None (occurrence: None)
  Receive Date: 20070626
  Receipt Date: 20070613
  Transmission Date: 20071010
  Serious: Yes (Hospitalization)
  Sender: FDA-Public Use
  Company Number: 2007RL000257

PATIENT
  Age: 74 Year
  Sex: Female
  Weight: 60 kg

DRUGS (6)
  1. PROPAFENONE HCL [Suspect]
     Indication: ARRHYTHMIA
     Dosage: SEE IMAGE
     Route: 048
     Dates: start: 19970101, end: 20040101
  2. LOSARTAN POTASSIUM [Concomitant]
  3. CAPTOPRIL [Concomitant]
  4. BROMAZEPAM [Concomitant]
  5. HOMEOPATHIC PREPARATION [Concomitant]
  6. SEROQUEL [Concomitant]

REACTIONS (9)
  - ARRHYTHMIA [None]
  - BLOOD PRESSURE INCREASED [None]
  - CARDIAC FIBRILLATION [None]
  - DRY MOUTH [None]
  - DYSGEUSIA [None]
  - HEADACHE [None]
  - ISCHAEMIA [None]
  - NAUSEA [None]
  - NERVOUSNESS [None]
